FAERS Safety Report 24252458 (Version 1)
Quarter: 2024Q3

REPORT INFORMATION
  Report Type: Spontaneous
  Country: FR (occurrence: FR)
  Receive Date: 20240827
  Receipt Date: 20240827
  Transmission Date: 20241017
  Serious: Yes (Hospitalization, Other)
  Sender: ROCHE
  Company Number: None

PATIENT
  Age: 64 Year
  Sex: Male
  Weight: 82 kg

DRUGS (20)
  1. RITUXIMAB [Suspect]
     Active Substance: RITUXIMAB
     Indication: Schwannoma
     Dosage: 4TH LINE OF TREATMENT WITH R-CHOP, 6TH CYCLE OCTOBER 2022
     Route: 065
     Dates: start: 2022, end: 202210
  2. RITUXIMAB [Suspect]
     Active Substance: RITUXIMAB
     Indication: Follicular lymphoma
     Dosage: 12200 MG
     Route: 065
  3. RITUXIMAB [Suspect]
     Active Substance: RITUXIMAB
     Dosage: R-BENDA
     Route: 065
     Dates: start: 201804
  4. RITUXIMAB [Suspect]
     Active Substance: RITUXIMAB
     Route: 065
  5. BENDAMUSTINE HYDROCHLORIDE [Suspect]
     Active Substance: BENDAMUSTINE HYDROCHLORIDE
     Indication: Follicular lymphoma
     Dosage: 2160 MG
     Route: 065
  6. BENDAMUSTINE HYDROCHLORIDE [Suspect]
     Active Substance: BENDAMUSTINE HYDROCHLORIDE
     Dosage: R-BENDA REGIMEN
     Route: 065
     Dates: start: 201804
  7. YESCARTA [Suspect]
     Active Substance: AXICABTAGENE CILOLEUCEL
     Indication: Follicular lymphoma
     Dosage: 1 DF TOTAL
     Route: 050
     Dates: start: 20230614, end: 20230614
  8. VINCRISTINE SULFATE [Suspect]
     Active Substance: VINCRISTINE SULFATE
     Indication: Follicular lymphoma
     Dosage: 4TH LINE OF TREATMENT WITH R-CHOP, 6TH CYCLE OCTOBER 2022 14 MG TOTAL
     Route: 050
     Dates: start: 2022, end: 202210
  9. VINCRISTINE SULFATE [Suspect]
     Active Substance: VINCRISTINE SULFATE
     Dosage: 14 MG TOTAL
     Route: 050
  10. PREDNISONE [Suspect]
     Active Substance: PREDNISONE
     Indication: Follicular lymphoma
     Dosage: 4TH LINE OF TREATMENT WITH R-CHOP, 6TH CYCLE OCTOBER 2022
     Route: 065
     Dates: start: 2022, end: 202210
  11. DOXORUBICIN [Suspect]
     Active Substance: DOXORUBICIN
     Indication: Follicular lymphoma
     Dosage: 4TH LINE OF TREATMENT WITH R-CHOP, 6TH CYCLE OCTOBER 2022 500 MG TOTAL
     Route: 050
     Dates: start: 2022, end: 202210
  12. DOXORUBICIN [Suspect]
     Active Substance: DOXORUBICIN
     Dosage: 500 MG
     Route: 050
  13. FLUDARABINE [Suspect]
     Active Substance: FLUDARABINE PHOSPHATE
     Indication: Follicular lymphoma
     Dosage: 180 MG
     Route: 065
  14. FLUDARABINE [Suspect]
     Active Substance: FLUDARABINE PHOSPHATE
     Dosage: 60 MG QD
     Route: 065
  15. CYCLOPHOSPHAMIDE [Suspect]
     Active Substance: CYCLOPHOSPHAMIDE
     Indication: Follicular lymphoma
     Dosage: 12600 MG TOTAL
     Route: 050
     Dates: start: 2018, end: 202210
  16. CYCLOPHOSPHAMIDE [Suspect]
     Active Substance: CYCLOPHOSPHAMIDE
     Dosage: 1000 MG QD
     Route: 065
     Dates: start: 20230614
  17. CYCLOPHOSPHAMIDE [Suspect]
     Active Substance: CYCLOPHOSPHAMIDE
     Dosage: 4TH LINE OF TREATMENT WITH R-CHOP, 6TH CYCLE OCTOBER 2022
     Route: 065
     Dates: start: 2022, end: 202210
  18. MESNA [Concomitant]
     Active Substance: MESNA
     Indication: Follicular lymphoma
     Dosage: 1300 MG, QD
  19. DEXAMETHASONE [Concomitant]
     Active Substance: DEXAMETHASONE
     Indication: Follicular lymphoma
     Dosage: UNK
  20. TOCILIZUMAB [Concomitant]
     Active Substance: TOCILIZUMAB
     Indication: Follicular lymphoma
     Dosage: UNK

REACTIONS (6)
  - Cytokine release syndrome [Unknown]
  - Dysplasia [Unknown]
  - Thrombocytopenia [Unknown]
  - Immune effector cell-associated neurotoxicity syndrome [Unknown]
  - Myelodysplastic syndrome [Not Recovered/Not Resolved]
  - Anaemia [Unknown]

NARRATIVE: CASE EVENT DATE: 20240515
